FAERS Safety Report 10091773 (Version 1)
Quarter: 2014Q2

REPORT INFORMATION
  Report Type: Spontaneous
  Country: US (occurrence: US)
  Receive Date: 20140421
  Receipt Date: 20140421
  Transmission Date: 20141212
  Serious: No
  Sender: FDA-Public Use
  Company Number: US-PURDUE-USA-2004-0015397

PATIENT
  Sex: Female

DRUGS (2)
  1. OXYFAST [Suspect]
     Indication: PRODUCT USED FOR UNKNOWN INDICATION
     Dosage: UNK MG, UNK
  2. UNKNOWN [Concomitant]

REACTIONS (1)
  - Dysgeusia [Unknown]
